FAERS Safety Report 17436510 (Version 2)
Quarter: 2020Q1

REPORT INFORMATION
  Report Type: Spontaneous
  Country: GR (occurrence: GR)
  Receive Date: 20200219
  Receipt Date: 20200310
  Transmission Date: 20200409
  Serious: Yes (Other)
  Sender: FDA-Public Use
  Company Number: GR-MYLANLABS-2020M1017937

PATIENT
  Age: 82 Year
  Sex: Female

DRUGS (5)
  1. SALOSPIR [Concomitant]
     Active Substance: ASPIRIN
     Dosage: UNK
  2. ANAGRELIDE MYLAN [Suspect]
     Active Substance: ANAGRELIDE HYDROCHLORIDE MONOHYDRATE
     Indication: ESSENTIAL THROMBOCYTHAEMIA
     Dosage: UNK
     Dates: start: 201909, end: 202001
  3. GLUCOPHAGE [Concomitant]
     Active Substance: METFORMIN HYDROCHLORIDE
     Indication: TYPE 2 DIABETES MELLITUS
     Dosage: UNK
  4. COPALIA [Concomitant]
     Active Substance: AMLODIPINE BESYLATE\VALSARTAN
     Indication: HYPERTENSION
     Dosage: UNK
  5. AUGMENTIN [Concomitant]
     Active Substance: AMOXICILLIN\CLAVULANATE POTASSIUM
     Indication: VIRAL INFECTION
     Dosage: UNK
     Dates: start: 202002

REACTIONS (1)
  - Drug ineffective [Recovering/Resolving]
